FAERS Safety Report 17078226 (Version 1)
Quarter: 2019Q4

REPORT INFORMATION
  Report Type: Report from Study
  Country: US (occurrence: US)
  Receive Date: 20191126
  Receipt Date: 20191126
  Transmission Date: 20200122
  Serious: Yes (Death)
  Sender: FDA-Public Use
  Company Number: US-EXELIXIS-CABO-19024683

PATIENT
  Age: 72 Year
  Sex: Male

DRUGS (2)
  1. COMETRIQ [Suspect]
     Active Substance: CABOZANTINIB S-MALATE
     Indication: THYROID CANCER
     Dosage: 60 MG, QD (IN THE MORNING WITHIN 30 MINUTES OF A MEAL)
     Dates: start: 20191004, end: 201910
  2. COMETRIQ [Suspect]
     Active Substance: CABOZANTINIB S-MALATE
     Dosage: 60 MG, QD (IN THE MORNING WITHIN 30 MINUTES OF A MEAL)
     Dates: start: 201910

REACTIONS (9)
  - Dyspnoea [Unknown]
  - Death [Fatal]
  - Nausea [Unknown]
  - Asthenia [Unknown]
  - Product dose omission [Unknown]
  - Decreased appetite [Unknown]
  - Product administration error [Unknown]
  - Weight decreased [Unknown]
  - Chest pain [Unknown]

NARRATIVE: CASE EVENT DATE: 201910
